FAERS Safety Report 14655293 (Version 1)
Quarter: 2018Q1

REPORT INFORMATION
  Report Type: Report from Study
  Country: NZ (occurrence: NZ)
  Receive Date: 20180319
  Receipt Date: 20180319
  Transmission Date: 20180509
  Serious: Yes (Other)
  Sender: FDA-Public Use
  Company Number: NZ-MYLANLABS-2018M1016679

PATIENT
  Age: 23 Year
  Sex: Male

DRUGS (11)
  1. FENTANYL. [Suspect]
     Active Substance: FENTANYL
     Indication: ANAESTHESIA
     Dosage: UNK
     Route: 065
  2. THIOPENTONE                        /00053401/ [Suspect]
     Active Substance: THIOPENTAL
     Indication: INDUCTION OF ANAESTHESIA
     Dosage: UNK
     Route: 065
  3. SUXAMETHONIUM [Suspect]
     Active Substance: SUCCINYLCHOLINE
     Indication: INDUCTION OF ANAESTHESIA
     Dosage: UNK
     Route: 065
  4. NITROUS OXIDE. [Suspect]
     Active Substance: NITROUS OXIDE
     Indication: MAINTENANCE OF ANAESTHESIA
     Dosage: UNK
     Route: 065
  5. PANCURONIUM [Suspect]
     Active Substance: PANCURONIUM
     Indication: INDUCTION OF ANAESTHESIA
     Dosage: UNK
     Route: 065
  6. THIOPENTONE                        /00053401/ [Suspect]
     Active Substance: THIOPENTAL
     Indication: ENDOTRACHEAL INTUBATION
  7. ISOFLURANE. [Suspect]
     Active Substance: ISOFLURANE
     Indication: MAINTENANCE OF ANAESTHESIA
     Dosage: UNK
     Route: 065
     Dates: start: 1989, end: 1989
  8. FENTANYL. [Suspect]
     Active Substance: FENTANYL
     Indication: ENDOTRACHEAL INTUBATION
  9. HALOTHANE. [Suspect]
     Active Substance: HALOTHANE
     Indication: MAINTENANCE OF ANAESTHESIA
     Dosage: UNK
     Route: 065
  10. ATRACURIUM [Concomitant]
     Active Substance: ATRACURIUM
     Indication: HYPOTONIA
     Dosage: UNK
     Route: 065
  11. SUXAMETHONIUM [Suspect]
     Active Substance: SUCCINYLCHOLINE
     Indication: ENDOTRACHEAL INTUBATION

REACTIONS (1)
  - Hyperthermia malignant [Unknown]
